FAERS Safety Report 5967161-4 (Version None)
Quarter: 2008Q4

REPORT INFORMATION
  Report Type: 
  Country: None (occurrence: None)
  Receive Date: 20081125
  Receipt Date: 20081117
  Transmission Date: 20090506
  Serious: Yes (Hospitalization, Other)
  Sender: FDA-Public Use
  Company Number: US-ELI_LILLY_AND_COMPANY-US200811003846

PATIENT
  Age: 78 Year
  Sex: Female

DRUGS (6)
  1. FORTEO [Suspect]
     Dates: start: 20080101
  2. METFORMIN HCL [Concomitant]
     Indication: DIABETES MELLITUS
     Dates: start: 20050101
  3. FOSAMAX [Concomitant]
     Indication: OSTEOPOROSIS
  4. CALCITONIN-SALMON [Concomitant]
     Indication: OSTEOPOROSIS
  5. VITAMIN D [Concomitant]
     Indication: SUPPLEMENTATION THERAPY
     Dosage: 50000 U, UNK
  6. CALCIUM WITH VITAMIN D /00944201/ [Concomitant]
     Indication: SUPPLEMENTATION THERAPY
     Dosage: 600 MG, 2/D

REACTIONS (6)
  - FEMUR FRACTURE [None]
  - GAIT DISTURBANCE [None]
  - HAEMORRHAGE [None]
  - HEART RATE INCREASED [None]
  - LOSS OF CONSCIOUSNESS [None]
  - PULMONARY THROMBOSIS [None]
